FAERS Safety Report 10612109 (Version 1)
Quarter: 2014Q4

REPORT INFORMATION
  Report Type: Spontaneous
  Country: FR (occurrence: FR)
  Receive Date: 20141127
  Receipt Date: 20141127
  Transmission Date: 20150529
  Serious: Yes (Death)
  Sender: FDA-Public Use
  Company Number: FR-CIPLA LTD.-2014FR02120

PATIENT

DRUGS (7)
  1. CAPECITABINE. [Suspect]
     Active Substance: CAPECITABINE
     Indication: GASTRIC CANCER
     Dosage: 1 G/M2 TWICE PER DAY FROM DAY 2 TO DAY 15 EVERY 3 WEEKS
     Route: 048
  2. CISPLATIN. [Suspect]
     Active Substance: CISPLATIN
     Indication: GASTRIC CANCER
     Dosage: 60 MG/M2 (1 HOUR IV INFUSION) ON DAY 1 EVERY 3 WEEKS
     Route: 042
  3. EPIRUBICIN [Suspect]
     Active Substance: EPIRUBICIN
     Indication: GASTRIC CANCER
     Dosage: 50 MG/M2 (15 MINUTE INTRAVENOUS INFUSION) EVERY 3 WEEKS
     Route: 042
  4. FLUOROURACIL. [Suspect]
     Active Substance: FLUOROURACIL
     Dosage: 2,400 MG/M2 AS A 46 HOUR CONTINUOUS INFUSION EVERY 2 WEEKS
  5. IRINOTECAN [Suspect]
     Active Substance: IRINOTECAN
     Indication: GASTRIC CANCER
     Dosage: 180MG/M2 (90 MINUTE IV INFUSION) EVERY 2 WEEKS
  6. LEUCOVORIN [Suspect]
     Active Substance: LEUCOVORIN
     Indication: GASTRIC CANCER
     Dosage: 400 MG/M2 (2 HOUR IV INFUSION) EVERY 2 WEEKS
  7. FLUOROURACIL. [Suspect]
     Active Substance: FLUOROURACIL
     Indication: GASTRIC CANCER
     Dosage: 400 MG/M2 IV BOLUS
     Route: 042

REACTIONS (1)
  - Gastrointestinal toxicity [Fatal]
